FAERS Safety Report 5106273-4 (Version None)
Quarter: 2006Q3

REPORT INFORMATION
  Report Type: 
  Country: None (occurrence: None)
  Receive Date: 20060918
  Receipt Date: 20060710
  Transmission Date: 20061208
  Serious: Yes (Hospitalization)
  Sender: FDA-Public Use
  Company Number: PHRM2006FR02034

PATIENT
  Age: 83 Year
  Sex: Female

DRUGS (7)
  1. EFFEXOR [Concomitant]
     Indication: DEPRESSION
     Dosage: 1 DF, QD
     Route: 048
     Dates: start: 20060530
  2. ARICEPT [Concomitant]
     Dosage: UNK, UNK
     Route: 048
     Dates: end: 20060530
  3. IMOVANE [Concomitant]
     Route: 048
  4. COTAREG [Suspect]
     Indication: ESSENTIAL HYPERTENSION
     Route: 048
  5. NEXIUM [Concomitant]
     Dosage: 40 MG/DAY
     Route: 048
  6. ASPIRIN [Concomitant]
     Route: 048
  7. SOTALOL HCL [Concomitant]
     Indication: ATRIAL FIBRILLATION
     Dosage: 80 MG, QD
     Route: 048

REACTIONS (7)
  - CARDIAC MURMUR [None]
  - CEREBRAL DISORDER [None]
  - FLUID INTAKE RESTRICTION [None]
  - HEART SOUNDS ABNORMAL [None]
  - HYPONATRAEMIA [None]
  - MINI MENTAL STATUS EXAMINATION ABNORMAL [None]
  - RALES [None]
